FAERS Safety Report 4389611-X (Version None)
Quarter: 2004Q2

REPORT INFORMATION
  Report Type: 
  Country: None (occurrence: None)
  Receive Date: 20040629
  Receipt Date: 20040408
  Transmission Date: 20050107
  Serious: Yes (Hospitalization)
  Sender: FDA-Public Use
  Company Number: US-JNJFOC-20040203790

PATIENT
  Age: 49 Year
  Sex: Male

DRUGS (11)
  1. DURAGESIC [Suspect]
     Indication: PAIN
     Dosage: SEE IMAGE
     Route: 062
     Dates: start: 20040128, end: 20040130
  2. NEURONTIN [Concomitant]
  3. BACLOFEN [Concomitant]
  4. TIZANIDINE (TIZANIDINE) [Concomitant]
  5. NORVASC [Concomitant]
  6. BLOOD PRESSURE MEDICATION (ANTIHYPERTENSIVES) [Concomitant]
  7. ZANAFLEX [Concomitant]
  8. CYTOMEL [Concomitant]
  9. HYDROCHLOROTHIAZIDE [Concomitant]
  10. BACLOFEN [Concomitant]
  11. , [Concomitant]

REACTIONS (8)
  - ABNORMAL DREAMS [None]
  - CHEST PAIN [None]
  - CONFUSIONAL STATE [None]
  - DIZZINESS [None]
  - HALLUCINATIONS, MIXED [None]
  - HEADACHE [None]
  - SEDATION [None]
  - TREMOR [None]
